FAERS Safety Report 15955070 (Version 2)
Quarter: 2019Q2

REPORT INFORMATION
  Report Type: Spontaneous
  Country: US (occurrence: US)
  Receive Date: 20190213
  Receipt Date: 20190422
  Transmission Date: 20190711
  Serious: No
  Sender: FDA-Public Use
  Company Number: US-PFIZER INC-2019057527

PATIENT
  Age: 70 Year
  Sex: Female
  Weight: 68.4 kg

DRUGS (5)
  1. ESTRING [Suspect]
     Active Substance: ESTRADIOL
     Indication: AUTOMATIC BLADDER
     Dosage: UNK
     Route: 067
  2. FLUTICASONE PROPIONATE. [Concomitant]
     Active Substance: FLUTICASONE PROPIONATE
     Dosage: 50 UG, UNK [1 SPRAYS]
  3. SYNTHROID [Concomitant]
     Active Substance: LEVOTHYROXINE SODIUM
     Indication: HYPOTHYROIDISM
     Dosage: UNK
     Dates: start: 199909
  4. ESTRING [Suspect]
     Active Substance: ESTRADIOL
     Indication: POLLAKIURIA
  5. CYCLOBENZAPRINE. [Concomitant]
     Active Substance: CYCLOBENZAPRINE
     Indication: NECK INJURY
     Dosage: 10 MG, 1X/DAY
     Route: 048
     Dates: start: 1999

REACTIONS (1)
  - Drug ineffective for unapproved indication [Unknown]
